FAERS Safety Report 8971618 (Version 1)
Quarter: 2012Q4

REPORT INFORMATION
  Report Type: Report from Study
  Country: US (occurrence: US)
  Receive Date: 20121217
  Receipt Date: 20121217
  Transmission Date: 20130627
  Serious: Yes (Hospitalization)
  Sender: FDA-Public Use
  Company Number: US-ABBOTT-12P-163-1019867-00

PATIENT
  Sex: Male

DRUGS (1)
  1. HUMIRA [Suspect]
     Indication: PSORIATIC ARTHROPATHY
     Dates: start: 201201, end: 201205

REACTIONS (8)
  - Ascites [Not Recovered/Not Resolved]
  - Chromaturia [Not Recovered/Not Resolved]
  - Jaundice [Not Recovered/Not Resolved]
  - Nausea [Not Recovered/Not Resolved]
  - Hepatic enzyme increased [Not Recovered/Not Resolved]
  - Arthralgia [Not Recovered/Not Resolved]
  - General physical health deterioration [Unknown]
  - Arthritis [Unknown]
